FAERS Safety Report 24111141 (Version 1)
Quarter: 2024Q3

REPORT INFORMATION
  Report Type: Spontaneous
  Country: NL (occurrence: NL)
  Receive Date: 20240718
  Receipt Date: 20240718
  Transmission Date: 20241016
  Serious: Yes (Hospitalization)
  Sender: SANDOZ
  Company Number: NL-GILEAD-2024-0662120

PATIENT
  Sex: Female
  Weight: 67.5 kg

DRUGS (32)
  1. CARBOPLATIN [Suspect]
     Active Substance: CARBOPLATIN
     Dosage: 425 MG
     Route: 042
     Dates: start: 20231229, end: 20231229
  2. CARBOPLATIN [Suspect]
     Active Substance: CARBOPLATIN
     Indication: Non-small cell lung cancer metastatic
     Dosage: 445 MG
     Route: 042
     Dates: start: 20240301, end: 20240301
  3. CARBOPLATIN [Suspect]
     Active Substance: CARBOPLATIN
     Dosage: 450 MG
     Route: 042
     Dates: start: 20240209, end: 20240209
  4. CARBOPLATIN [Suspect]
     Active Substance: CARBOPLATIN
     Dosage: 520 MG
     Route: 042
     Dates: start: 20240119, end: 20240119
  5. PEMETREXED [Suspect]
     Active Substance: PEMETREXED
     Indication: Non-small cell lung cancer metastatic
     Dosage: 880 MG
     Route: 042
     Dates: start: 20240301, end: 20240301
  6. PEMETREXED [Suspect]
     Active Substance: PEMETREXED
     Dosage: 900 MG
     Route: 042
     Dates: start: 20231229, end: 20231229
  7. PEMETREXED [Suspect]
     Active Substance: PEMETREXED
     Dosage: 900 MG
     Route: 042
     Dates: start: 20240119, end: 20240119
  8. PEMETREXED [Suspect]
     Active Substance: PEMETREXED
     Dosage: 900 MG
     Route: 042
     Dates: start: 20240209, end: 20240209
  9. ZIMBERELIMAB [Suspect]
     Active Substance: ZIMBERELIMAB
     Indication: Non-small cell lung cancer metastatic
     Dosage: 360 MG
     Route: 042
     Dates: start: 20240119, end: 20240119
  10. ZIMBERELIMAB [Suspect]
     Active Substance: ZIMBERELIMAB
     Dosage: 360 MG
     Route: 042
     Dates: start: 20231229, end: 20231229
  11. ZIMBERELIMAB [Suspect]
     Active Substance: ZIMBERELIMAB
     Dosage: 360 MG
     Route: 042
     Dates: start: 20240209, end: 20240209
  12. ZIMBERELIMAB [Suspect]
     Active Substance: ZIMBERELIMAB
     Dosage: 360 MG
     Route: 042
     Dates: start: 20240322, end: 20240322
  13. APIXABAN [Concomitant]
     Active Substance: APIXABAN
     Indication: Pulmonary embolism
     Dosage: UNK
     Route: 048
     Dates: start: 20240113
  14. CODEINE [Concomitant]
     Active Substance: CODEINE
     Indication: Cough
     Dosage: UNK
     Route: 048
     Dates: start: 20240122
  15. DESLORATADINE [Concomitant]
     Active Substance: DESLORATADINE
     Indication: Rash
     Dosage: UNK
     Route: 048
     Dates: start: 20240117
  16. DEXAMETHASONE [Concomitant]
     Active Substance: DEXAMETHASONE
     Dosage: UNK
     Route: 042
     Dates: start: 20240209, end: 20240209
  17. DEXAMETHASONE [Concomitant]
     Active Substance: DEXAMETHASONE
     Indication: Premedication
     Route: 042
     Dates: start: 20240119, end: 20240119
  18. ELIQUIS [Concomitant]
     Active Substance: APIXABAN
     Indication: Product used for unknown indication
     Dosage: UNK
     Route: 065
  19. EZETIMIBE [Concomitant]
     Active Substance: EZETIMIBE
     Indication: Prophylaxis
     Dosage: UNK
     Route: 048
     Dates: start: 20220215
  20. FOLIC ACID [Concomitant]
     Active Substance: FOLIC ACID
     Indication: Prophylaxis
     Dosage: UNK
     Route: 048
     Dates: start: 20231222
  21. NADROPARIN CALCIUM [Concomitant]
     Active Substance: NADROPARIN CALCIUM
     Indication: Pulmonary embolism
     Dosage: UNK
     Route: 058
     Dates: start: 20240111, end: 20240113
  22. NOVORAPID [Concomitant]
     Active Substance: INSULIN ASPART
     Indication: Type 1 diabetes mellitus
     Dosage: UNK
     Route: 058
     Dates: start: 20170801
  23. INSULIN PORK\INSULIN PURIFIED PORK [Concomitant]
     Active Substance: INSULIN PORK\INSULIN PURIFIED PORK
     Indication: Type 1 diabetes mellitus
     Dosage: UNK
     Route: 058
     Dates: start: 20170801
  24. LEVOTHYROXINE [Concomitant]
     Active Substance: LEVOTHYROXINE\LEVOTHYROXINE SODIUM
     Indication: Hypothyroidism
     Dosage: UNK
     Route: 048
     Dates: start: 20230704
  25. LIDOCAINE [Concomitant]
     Active Substance: LIDOCAINE
     Indication: Mouth ulceration
     Dosage: UNK
     Route: 050
     Dates: start: 20240131, end: 20240205
  26. POLYETHYLENE GLYCOLS [Concomitant]
     Active Substance: POLYETHYLENE GLYCOLS
     Indication: Prophylaxis
     Route: 048
     Dates: start: 20231229
  27. ONDANSETRON [Concomitant]
     Active Substance: ONDANSETRON
     Indication: Premedication
     Dosage: UNK
     Route: 042
     Dates: start: 20240209, end: 20240209
  28. ONDANSETRON [Concomitant]
     Active Substance: ONDANSETRON
     Route: 042
     Dates: start: 20240119, end: 20240119
  29. ACETAMINOPHEN [Concomitant]
     Active Substance: ACETAMINOPHEN
     Indication: Pyrexia
     Dosage: UNK
     Route: 042
     Dates: start: 20240210, end: 20240211
  30. ACETAMINOPHEN [Concomitant]
     Active Substance: ACETAMINOPHEN
     Indication: Infusion related reaction
  31. SIMVASTATIN [Concomitant]
     Active Substance: SIMVASTATIN
     Indication: Prophylaxis
     Dosage: UNK
     Route: 048
     Dates: start: 20200624
  32. LEVOTHYROXINE [Concomitant]
     Active Substance: LEVOTHYROXINE\LEVOTHYROXINE SODIUM
     Indication: Hypothyroidism
     Dosage: UNK
     Route: 048
     Dates: start: 20230704

REACTIONS (3)
  - Infusion related reaction [Recovered/Resolved]
  - Infusion related reaction [Recovered/Resolved]
  - Dyspnoea exertional [Recovered/Resolved]

NARRATIVE: CASE EVENT DATE: 20240301
